FAERS Safety Report 8621515-6 (Version None)
Quarter: 2012Q3

REPORT INFORMATION
  Report Type: 
  Country: None (occurrence: None)
  Receive Date: 20120824
  Receipt Date: 20120820
  Transmission Date: 20120928
  Serious: Yes (Other)
  Sender: FDA-Public Use
  Company Number: BR-ABBOTT-12P-020-0971072-00

PATIENT
  Sex: Female
  Weight: 65 kg

DRUGS (2)
  1. METHOTREXATE [Concomitant]
     Indication: ARTHRITIS
     Route: 048
     Dates: start: 20120801
  2. HUMIRA [Suspect]
     Indication: RHEUMATOID ARTHRITIS
     Route: 058
     Dates: start: 20120625

REACTIONS (3)
  - PYREXIA [None]
  - RETCHING [None]
  - HALLUCINATION [None]
